FAERS Safety Report 16926574 (Version 1)
Quarter: 2019Q4

REPORT INFORMATION
  Report Type: Spontaneous
  Country: US (occurrence: US)
  Receive Date: 20191016
  Receipt Date: 20191016
  Transmission Date: 20200122
  Serious: Yes (Other)
  Sender: FDA-Public Use
  Company Number: US-SA-2019SA281613

PATIENT
  Age: 64 Year
  Sex: Female

DRUGS (3)
  1. METHASOL [Concomitant]
  2. LANTUS SOLOSTAR [Suspect]
     Active Substance: INSULIN GLARGINE
     Indication: TYPE 2 DIABETES MELLITUS
     Dosage: 20 UNITS IN THE MORNING AND 35 UNITS EACH EVENING
     Route: 065
  3. GABAPENTIN. [Concomitant]
     Active Substance: GABAPENTIN

REACTIONS (2)
  - Inappropriate schedule of product administration [Unknown]
  - Metabolic surgery [Unknown]
